FAERS Safety Report 6105745-3 (Version None)
Quarter: 2009Q1

REPORT INFORMATION
  Report Type: 
  Country: None (occurrence: None)
  Receive Date: 20090306
  Receipt Date: 20090303
  Transmission Date: 20090719
  Serious: Yes (Hospitalization)
  Sender: FDA-Public Use
  Company Number: BE-JNJFOC-20090204518

PATIENT
  Age: 53 Year
  Sex: Female

DRUGS (7)
  1. DOXORUBICIN HCL [Suspect]
     Indication: BREAST CANCER
     Route: 042
  2. CLEXANE [Concomitant]
     Route: 065
  3. ACTRAPID [Concomitant]
     Route: 065
  4. KREDEX [Concomitant]
     Route: 065
  5. ZANTAC [Concomitant]
     Route: 065
  6. ZOLPIDEM TARTRATE [Concomitant]
     Route: 065
  7. DUOVENT [Concomitant]
     Route: 065

REACTIONS (3)
  - ELECTROCARDIOGRAM QT PROLONGED [None]
  - HYPOKALAEMIA [None]
  - VENTRICULAR FIBRILLATION [None]
